FAERS Safety Report 17029868 (Version 1)
Quarter: 2019Q4

REPORT INFORMATION
  Report Type: Spontaneous
  Country: CH (occurrence: CH)
  Receive Date: 20191114
  Receipt Date: 20191114
  Transmission Date: 20200122
  Serious: Yes (Death, Other)
  Sender: FDA-Public Use
  Company Number: NVSC2019CH034108

PATIENT
  Sex: Male

DRUGS (1)
  1. ENTRESTO [Suspect]
     Active Substance: SACUBITRIL\VALSARTAN
     Indication: CARDIAC FAILURE
     Dosage: UNK UKN
     Route: 048

REACTIONS (4)
  - Subdural haematoma [Unknown]
  - Arrhythmia [Fatal]
  - Renal impairment [Recovered/Resolved]
  - Fall [Unknown]
